FAERS Safety Report 13586774 (Version 1)
Quarter: 2017Q2

REPORT INFORMATION
  Report Type: Spontaneous
  Country: US (occurrence: US)
  Receive Date: 20170526
  Receipt Date: 20170526
  Transmission Date: 20170830
  Serious: No
  Sender: FDA-Public Use
  Company Number: US-ROCHE-1236810

PATIENT
  Sex: Male

DRUGS (1)
  1. VALCYTE [Suspect]
     Active Substance: VALGANCICLOVIR HYDROCHLORIDE
     Indication: CYTOMEGALOVIRUS INFECTION
     Dosage: DOSE VARIED FROM 1 TO 2 TABS TWICE DAILY
     Route: 048
     Dates: start: 201206, end: 20130513

REACTIONS (1)
  - Neuropathy peripheral [Not Recovered/Not Resolved]
